FAERS Safety Report 7593954-6 (Version None)
Quarter: 2011Q3

REPORT INFORMATION
  Report Type: 
  Country: None (occurrence: None)
  Receive Date: 20110706
  Receipt Date: 20110629
  Transmission Date: 20111222
  Serious: Yes (Hospitalization)
  Sender: FDA-Public Use
  Company Number: JP-PFIZER INC-2011125517

PATIENT
  Age: 59 Year
  Sex: Male
  Weight: 89 kg

DRUGS (13)
  1. MAGMITT [Suspect]
     Indication: CONSTIPATION
     Dosage: 250 MG, 2X/DAY
     Route: 048
     Dates: start: 20090704, end: 20110530
  2. WARFARIN SODIUM [Suspect]
     Indication: ATRIAL FIBRILLATION
     Dosage: 4 MG, 1X/DAY
     Route: 048
     Dates: start: 20090511, end: 20110530
  3. MEXITIL [Suspect]
     Indication: VENTRICULAR EXTRASYSTOLES
     Dosage: 50 MG, 6X/DAY
     Route: 048
     Dates: start: 20090511, end: 20110603
  4. MECOBALAMIN [Suspect]
     Indication: BACK PAIN
     Dosage: 0.5 MG, 3X/DAY
     Route: 048
     Dates: start: 20100303, end: 20110603
  5. PIMENOL [Suspect]
     Indication: VENTRICULAR EXTRASYSTOLES
     Dosage: 50 MG, 2X/DAY
     Route: 048
     Dates: start: 20090511, end: 20110603
  6. EPINASTINE HYDROCHLORIDE [Suspect]
     Indication: SEASONAL ALLERGY
     Dosage: 20 MG, 1X/DAY
     Route: 048
     Dates: start: 20110414, end: 20110603
  7. DOXAZOSIN MESYLATE [Suspect]
     Dosage: 2 MG, 1X/DAY
     Route: 048
     Dates: start: 20090715, end: 20110603
  8. LANSOPRAZOLE [Suspect]
     Indication: GASTROOESOPHAGEAL REFLUX DISEASE
     Dosage: 15 MG, 1X/DAY
     Route: 048
     Dates: start: 20090511, end: 20110603
  9. BISOPROLOL FUMARATE [Suspect]
     Indication: HYPERTENSION
     Dosage: 5 MG, 1X/DAY
     Route: 048
     Dates: start: 20090527, end: 20110603
  10. AMLODIPINE BESYLATE [Suspect]
     Dosage: 5 MG, 1X/DAY
     Route: 048
     Dates: start: 20090511, end: 20110603
  11. SAIREI-TO [Suspect]
     Indication: OEDEMA
     Dosage: 4.05 G, 2X/DAY
     Route: 048
     Dates: start: 20100809, end: 20110530
  12. GASMOTIN [Suspect]
     Indication: GASTROOESOPHAGEAL REFLUX DISEASE
     Dosage: 5 MG, 3X/DAY
     Route: 048
     Dates: start: 20091202, end: 20110603
  13. DIOVAN [Suspect]
     Indication: HYPERTENSION
     Dosage: 160 MG, 1X/DAY
     Route: 048
     Dates: start: 20090511, end: 20110603

REACTIONS (2)
  - ALANINE AMINOTRANSFERASE INCREASED [None]
  - HEPATIC FUNCTION ABNORMAL [None]
